FAERS Safety Report 26169504 (Version 1)
Quarter: 2025Q4

REPORT INFORMATION
  Report Type: Spontaneous
  Country: EU (occurrence: EU)
  Receive Date: 20251217
  Receipt Date: 20251217
  Transmission Date: 20260117
  Serious: Yes (Other)
  Sender: PFIZER
  Company Number: EU-PFIZER INC-202500242216

PATIENT
  Age: 16 Year
  Sex: Female

DRUGS (1)
  1. LITFULO [Suspect]
     Active Substance: RITLECITINIB TOSYLATE
     Indication: Alopecia
     Dosage: UNK

REACTIONS (8)
  - Diarrhoea [Unknown]
  - Leukopenia [Unknown]
  - Neutropenia [Unknown]
  - Enterocolitis [Unknown]
  - Weight decreased [Unknown]
  - Lymphopenia [Unknown]
  - Cell death [Unknown]
  - Mesenteric lymphadenitis [Unknown]

NARRATIVE: CASE EVENT DATE: 20251201
